FAERS Safety Report 10374171 (Version 4)
Quarter: 2016Q2

REPORT INFORMATION
  Report Type: Spontaneous
  Country: JP (occurrence: JP)
  Receive Date: 20140811
  Receipt Date: 20160406
  Transmission Date: 20160815
  Serious: Yes (Death, Hospitalization, Other)
  Sender: FDA-Public Use
  Company Number: JP-ROCHE-1445596

PATIENT
  Age: 64 Year
  Sex: Male
  Weight: 59 kg

DRUGS (18)
  1. VALIXA [Suspect]
     Active Substance: VALGANCICLOVIR
     Indication: CYTOMEGALOVIRUS INFECTION
     Route: 048
     Dates: start: 20130814, end: 20130822
  2. CELLCEPT [Suspect]
     Active Substance: MYCOPHENOLATE MOFETIL\MYCOPHENOLATE MOFETIL HYDROCHLORIDE
     Route: 048
     Dates: start: 20130826, end: 20130829
  3. VALTREX [Suspect]
     Active Substance: VALACYCLOVIR HYDROCHLORIDE
     Indication: PRODUCT USED FOR UNKNOWN INDICATION
     Route: 048
     Dates: start: 20130426, end: 20130831
  4. CIPROXAN [Concomitant]
     Active Substance: CIPROFLOXACIN
     Indication: PNEUMONIA BACTERIAL
     Route: 041
     Dates: start: 20130819, end: 20130901
  5. KENKETSU ALBUMIN [Concomitant]
     Indication: HYPOALBUMINAEMIA
     Dosage: 2 DOSAGE FORM
     Route: 041
     Dates: start: 20130823, end: 20130825
  6. BAKTAR [Concomitant]
     Active Substance: SULFAMETHOXAZOLE\TRIMETHOPRIM
     Indication: PROPHYLAXIS
     Dosage: DOSE: 0.5 DOSAGE FORM ONE IN ONE DAY
     Route: 048
     Dates: start: 20130426, end: 20130823
  7. PRIMPERAN [Concomitant]
     Active Substance: METOCLOPRAMIDE HYDROCHLORIDE
     Route: 042
     Dates: start: 20130818, end: 20130901
  8. OMEPRAL [Concomitant]
     Active Substance: OMEPRAZOLE
     Route: 041
     Dates: start: 20130818, end: 20130906
  9. AMPHOTERICIN B. [Concomitant]
     Active Substance: AMPHOTERICIN B
     Route: 065
     Dates: start: 20130829, end: 20130906
  10. REBETOL [Suspect]
     Active Substance: RIBAVIRIN
     Indication: HEPATITIS C
     Route: 048
     Dates: start: 20130815, end: 20130830
  11. FUNGUARD [Concomitant]
     Active Substance: MICAFUNGIN SODIUM
     Indication: BRONCHOPULMONARY ASPERGILLOSIS
     Route: 041
  12. PREDONINE [Concomitant]
     Active Substance: PREDNISOLONE\PREDNISOLONE ACETATE\PREDNISOLONE SODIUM SUCCINATE
     Route: 041
     Dates: start: 20130822, end: 20130901
  13. CELLCEPT [Suspect]
     Active Substance: MYCOPHENOLATE MOFETIL\MYCOPHENOLATE MOFETIL HYDROCHLORIDE
     Indication: PROPHYLAXIS AGAINST TRANSPLANT REJECTION
     Route: 048
     Dates: start: 20130424
  14. FOSCARNET SODIUM. [Concomitant]
     Active Substance: FOSCARNET SODIUM
     Route: 065
     Dates: start: 20130828
  15. TELAVIC [Suspect]
     Active Substance: TELAPREVIR
     Indication: HEPATITIS C
     Route: 048
     Dates: start: 20130815, end: 20130830
  16. PROGRAF [Suspect]
     Active Substance: TACROLIMUS\TACROLIMUS ANHYDROUS
     Indication: PROPHYLAXIS AGAINST TRANSPLANT REJECTION
     Route: 048
     Dates: start: 20130423
  17. TIENAM [Suspect]
     Active Substance: CILASTATIN SODIUM\IMIPENEM
     Indication: PNEUMONIA BACTERIAL
     Dosage: 31/JUL/2013: TIME 14:00?19/AUG/2013: TIME 14:00
     Route: 041
     Dates: start: 20130731, end: 20130819
  18. PEGINTRON [Suspect]
     Active Substance: PEGINTERFERON ALFA-2B
     Indication: HEPATITIS C
     Route: 058
     Dates: start: 20130815, end: 20130822

REACTIONS (3)
  - Pneumonia klebsiella [Fatal]
  - Pancytopenia [Not Recovered/Not Resolved]
  - Blood creatinine increased [Unknown]

NARRATIVE: CASE EVENT DATE: 20130824
